FAERS Safety Report 4490262-7 (Version None)
Quarter: 2004Q4

REPORT INFORMATION
  Report Type: 
  Country: None (occurrence: None)
  Receive Date: 20041028
  Receipt Date: 20041014
  Transmission Date: 20050328
  Serious: Yes (Hospitalization)
  Sender: FDA-Public Use
  Company Number: 200468

PATIENT
  Age: 47 Year
  Sex: Female

DRUGS (6)
  1. AVONEX [Suspect]
     Indication: MULTIPLE SCLEROSIS
     Dosage: 30 MCG QW IM
     Route: 030
     Dates: start: 20000301, end: 20040601
  2. LIPITOR [Concomitant]
  3. TOPROL-XL [Concomitant]
  4. TRIAMTERENE AND HYDROCHLOROTHIAZIDE [Concomitant]
  5. LEXAPRO [Concomitant]
  6. NEURONTIN [Concomitant]

REACTIONS (3)
  - BRAIN NEOPLASM [None]
  - MENINGIOMA [None]
  - NECROSIS [None]
